FAERS Safety Report 13130108 (Version 2)
Quarter: 2017Q1

REPORT INFORMATION
  Report Type: Spontaneous
  Country: DE (occurrence: DE)
  Receive Date: 20170119
  Receipt Date: 20170213
  Transmission Date: 20170428
  Serious: Yes (Other)
  Sender: FDA-Public Use
  Company Number: DE-AMGEN-DEUSP2017007534

PATIENT
  Sex: Male
  Weight: 76 kg

DRUGS (3)
  1. CRESTOR [Concomitant]
     Active Substance: ROSUVASTATIN CALCIUM
     Dosage: 2.5 UNK, UNK
  2. REPATHA [Suspect]
     Active Substance: EVOLOCUMAB
     Indication: HYPERCHOLESTEROLAEMIA
     Dosage: UNK, Q2WK
     Route: 065
     Dates: start: 20160711
  3. EZETROL [Concomitant]
     Active Substance: EZETIMIBE

REACTIONS (3)
  - Polyneuropathy [Unknown]
  - Hypercholesterolaemia [Unknown]
  - Angina pectoris [Unknown]
